FAERS Safety Report 24612535 (Version 1)
Quarter: 2024Q4

REPORT INFORMATION
  Report Type: Spontaneous
  Country: IT (occurrence: IT)
  Receive Date: 20241113
  Receipt Date: 20241113
  Transmission Date: 20250115
  Serious: Yes (Death, Hospitalization)
  Sender: CHEPLAPHARM
  Company Number: None

PATIENT
  Age: 15 Year
  Sex: Female

DRUGS (4)
  1. OLANZAPINE [Suspect]
     Active Substance: OLANZAPINE
     Dates: start: 20241009
  2. COLCHICINE [Suspect]
     Active Substance: COLCHICINE
     Dosage: 40 CAPS OF COLCHICINE
     Route: 048
     Dates: start: 20241009
  3. ACETAMINOPHEN [Suspect]
     Active Substance: ACETAMINOPHEN
     Route: 048
     Dates: start: 20241009
  4. DICLOFENAC SODIUM [Suspect]
     Active Substance: DICLOFENAC SODIUM
     Dosage: 10 CAPS OF DICLOREUM
     Route: 048
     Dates: start: 20241009

REACTIONS (9)
  - Toxicity to various agents [Fatal]
  - Vomiting [Unknown]
  - Somnolence [Unknown]
  - Polyuria [Unknown]
  - Metabolic acidosis [Unknown]
  - Hypokalaemia [Unknown]
  - Coagulation test abnormal [Unknown]
  - Liver function test abnormal [Unknown]
  - Pyrexia [Unknown]

NARRATIVE: CASE EVENT DATE: 20241009
